FAERS Safety Report 19089205 (Version 2)
Quarter: 2021Q4

REPORT INFORMATION
  Report Type: Report from Study
  Country: KE (occurrence: KE)
  Receive Date: 20210403
  Receipt Date: 20211231
  Transmission Date: 20220303
  Serious: Yes (Hospitalization, Other)
  Sender: FDA-Public Use
  Company Number: KE-CIPLA LTD.-2021KE02465

PATIENT

DRUGS (9)
  1. ABACAVIR\LAMIVUDINE [Suspect]
     Active Substance: ABACAVIR\LAMIVUDINE
     Indication: HIV infection WHO clinical stage II
     Dosage: 2.5 DOSAGE FORM, BID, 150MG/75MG BID DAILY
     Route: 048
     Dates: start: 20160624, end: 20170928
  2. LOPINAVIR\RITONAVIR [Suspect]
     Active Substance: LOPINAVIR\RITONAVIR
     Indication: HIV infection WHO clinical stage II
     Dosage: 5 DOSAGE FORM, BID, 200MG/50MG BID DAILY
     Route: 048
     Dates: start: 20160624, end: 20170928
  3. FOLIC ACID [Concomitant]
     Active Substance: FOLIC ACID
     Indication: Sickle cell disease
     Dosage: 5 MG, UNK
     Route: 065
     Dates: start: 20170524, end: 20170928
  4. COTRIMOXAZOLE [Concomitant]
     Active Substance: SULFAMETHOXAZOLE\TRIMETHOPRIM
     Indication: Infection prophylaxis
     Dosage: 480 MILLIGRAM, QD
     Route: 065
     Dates: start: 20150212, end: 20170928
  5. PNEUMOCOCCAL VACCINE POLYVALENT NOS [Concomitant]
     Active Substance: PNEUMOCOCCAL VACCINE POLYVALENT
     Indication: Pneumococcal immunisation
     Dosage: UNK
     Route: 065
     Dates: start: 20170524, end: 20170524
  6. MENINGOCOCCAL A AND C VACCINE [Concomitant]
     Indication: Meningococcal immunisation
     Dosage: UNK
     Route: 065
     Dates: start: 20170524, end: 20170524
  7. PENICILLIN V [Concomitant]
     Active Substance: PENICILLIN V
     Indication: Infection prophylaxis
     Dosage: 250 MILLIGRAM, BID
     Route: 065
     Dates: start: 20170524, end: 20170528
  8. PENICILLIN V [Concomitant]
     Active Substance: PENICILLIN V
     Dosage: UNK
     Route: 065
     Dates: start: 20170924, end: 20170928
  9. PROGUANIL [Concomitant]
     Active Substance: PROGUANIL
     Indication: Sickle cell disease
     Dosage: UNK
     Route: 065

REACTIONS (6)
  - Sepsis [None]
  - Sickle cell anaemia [None]
  - Acute chest syndrome [None]
  - Respiratory tract infection [Recovered/Resolved]
  - Anaemia [Unknown]
  - Rhinitis [Recovered/Resolved]

NARRATIVE: CASE EVENT DATE: 20161204
